FAERS Safety Report 14641455 (Version 2)
Quarter: 2018Q1

REPORT INFORMATION
  Report Type: Spontaneous
  Country: US (occurrence: US)
  Receive Date: 20180315
  Receipt Date: 20180321
  Transmission Date: 20180509
  Serious: Yes (Hospitalization)
  Sender: FDA-Public Use
  Company Number: US-FRESENIUS MEDICAL CARE RENAL THERAPIES GROUP-FMC-1803-000499

PATIENT
  Age: 68 Year
  Sex: Female
  Weight: 90.1 kg

DRUGS (18)
  1. DOCUSATE SODIUM. [Concomitant]
     Active Substance: DOCUSATE SODIUM
  2. COUMADIN [Concomitant]
     Active Substance: WARFARIN SODIUM
  3. DULOXETINE. [Concomitant]
     Active Substance: DULOXETINE
  4. EPOETIN ALFA [Concomitant]
     Active Substance: ERYTHROPOIETIN
  5. METOCLOPRAMIDE. [Concomitant]
     Active Substance: METOCLOPRAMIDE
  6. GABAPENTIN. [Concomitant]
     Active Substance: GABAPENTIN
  7. ATORVASTATIN [Concomitant]
     Active Substance: ATORVASTATIN
  8. INSULIN GLARGINE [Concomitant]
     Active Substance: INSULIN GLARGINE
  9. PANTOPRAZOLE [Concomitant]
     Active Substance: PANTOPRAZOLE
  10. REQUIP [Concomitant]
     Active Substance: ROPINIROLE HYDROCHLORIDE
  11. DILTIAZEM. [Concomitant]
     Active Substance: DILTIAZEM
  12. CLOPIDOGREL [Concomitant]
     Active Substance: CLOPIDOGREL BISULFATE
  13. SODIUM CHLORIDE. [Concomitant]
     Active Substance: SODIUM CHLORIDE
  14. XARELTO [Concomitant]
     Active Substance: RIVAROXABAN
  15. DELFLEX [Suspect]
     Active Substance: CALCIUM CHLORIDE\DEXTROSE\MAGNESIUM CHLORIDE\SODIUM CHLORIDE\SODIUM LACTATE
     Indication: END STAGE RENAL DISEASE
     Dosage: 5 EXCHANGES WITH FILL VOLUME OF 3000ML
     Route: 033
  16. CARVEDILOL. [Concomitant]
     Active Substance: CARVEDILOL
  17. INSULIN ASPART [Concomitant]
     Active Substance: INSULIN ASPART
  18. SEVELAMER [Concomitant]
     Active Substance: SEVELAMER

REACTIONS (2)
  - Chest pain [Recovering/Resolving]
  - Fluid retention [Recovering/Resolving]

NARRATIVE: CASE EVENT DATE: 20180310
